FAERS Safety Report 8920847 (Version 2)
Quarter: 2013Q1

REPORT INFORMATION
  Report Type: Spontaneous
  Country: US (occurrence: US)
  Receive Date: 20121122
  Receipt Date: 20130116
  Transmission Date: 20140127
  Serious: No
  Sender: FDA-Public Use
  Company Number: US-PFIZER INC-2012291434

PATIENT
  Age: 53 Year
  Sex: Male
  Weight: 77.1 kg

DRUGS (4)
  1. RELPAX [Suspect]
     Indication: MIGRAINE
     Dosage: 40 MG, AS NEEDED
  2. NADOLOL [Concomitant]
     Indication: MIGRAINE
     Dosage: 80 MG, DAILY
  3. TYLENOL [Concomitant]
     Indication: HEADACHE
     Dosage: 500 MG, 4X/DAY
     Dates: start: 20121119
  4. IBUPROFEN [Concomitant]
     Indication: HEADACHE
     Dosage: 800 MG, DAILY
     Dates: start: 20121119

REACTIONS (3)
  - Poor quality drug administered [Unknown]
  - Drug ineffective [Unknown]
  - Product quality issue [Unknown]
